FAERS Safety Report 5261337-X (Version None)
Quarter: 2007Q1

REPORT INFORMATION
  Report Type: 
  Country: None (occurrence: None)
  Receive Date: 20070307
  Receipt Date: 20070221
  Transmission Date: 20070707
  Serious: Yes (Hospitalization)
  Sender: FDA-Public Use
  Company Number: 2007US000397

PATIENT
  Age: 64 Year
  Sex: Female

DRUGS (8)
  1. VESICARE [Suspect]
     Indication: INCONTINENCE
     Dosage: 10 MG, ORAL
     Route: 048
  2. TENORMIN [Concomitant]
  3. PRANDIN (DEFLAZACORT) [Concomitant]
  4. ALLOPURINOL [Concomitant]
  5. LANTUS [Concomitant]
  6. LOMOTIL [Concomitant]
  7. XANAX [Concomitant]
  8. CHOLESTYRAMINE RESIN (COLESTYRAMINE) [Concomitant]

REACTIONS (3)
  - DRUG INEFFECTIVE [None]
  - SURGERY [None]
  - VAGINAL INFECTION [None]
